FAERS Safety Report 23972873 (Version 1)
Quarter: 2024Q2

REPORT INFORMATION
  Report Type: Spontaneous
  Country: US (occurrence: None)
  Receive Date: 20240613
  Receipt Date: 20240613
  Transmission Date: 20240716
  Serious: Yes (Hospitalization)
  Sender: FDA-Public Use
  Company Number: None

PATIENT
  Sex: Male

DRUGS (1)
  1. STIVARGA [Suspect]
     Active Substance: REGORAFENIB\REGORAFENIB MONOHYDRATE
     Indication: Colon cancer
     Dosage: OTHER QUANTITY : TAKE 4 TABLETS;?FREQUENCY : AS DIRECTED;?
     Route: 048
     Dates: start: 202404

REACTIONS (7)
  - Oropharyngeal pain [None]
  - Aphonia [None]
  - Constipation [None]
  - Fatigue [None]
  - Stomatitis [None]
  - Blood sodium decreased [None]
  - Therapy change [None]
